FAERS Safety Report 21350095 (Version 1)
Quarter: 2022Q3

REPORT INFORMATION
  Report Type: Spontaneous
  Country: US (occurrence: US)
  Receive Date: 20220919
  Receipt Date: 20220919
  Transmission Date: 20221026
  Serious: No
  Sender: FDA-Public Use
  Company Number: US-SAREPTA THERAPEUTICS INC.-SRP2022-002356

PATIENT
  Age: 10 Year
  Sex: Male
  Weight: 23.13 kg

DRUGS (12)
  1. VYONDYS 53 [Suspect]
     Active Substance: GOLODIRSEN
     Indication: Duchenne muscular dystrophy
     Dosage: 800 MILLIGRAM, WEEKLY
     Route: 042
     Dates: start: 20200819, end: 20220408
  2. VYONDYS 53 [Suspect]
     Active Substance: GOLODIRSEN
     Dosage: 800 MILLIGRAM, WEEKLY
     Route: 042
     Dates: start: 20220421, end: 20220510
  3. VYONDYS 53 [Suspect]
     Active Substance: GOLODIRSEN
     Dosage: 800 MILLIGRAM, WEEKLY
     Route: 042
     Dates: start: 20220526, end: 20220526
  4. VYONDYS 53 [Suspect]
     Active Substance: GOLODIRSEN
     Dosage: 800 MILLIGRAM, WEEKLY
     Route: 042
     Dates: start: 20220607, end: 20220607
  5. VYONDYS 53 [Suspect]
     Active Substance: GOLODIRSEN
     Dosage: 800 MILLIGRAM, WEEKLY
     Route: 042
     Dates: start: 20220621
  6. VITAMIN D NOS [Suspect]
     Active Substance: VITAMIN D NOS
     Indication: Product used for unknown indication
     Dosage: UNK
     Route: 042
  7. VITAMIN D NOS [Suspect]
     Active Substance: VITAMIN D NOS
     Dosage: 2000 INTERNATIONAL UNIT, QD
     Route: 048
     Dates: start: 20211206
  8. VITAMIN D NOS [Suspect]
     Active Substance: VITAMIN D NOS
     Dosage: 1000 INTERNATIONAL UNIT, QD
     Route: 048
     Dates: end: 20211205
  9. EMFLAZA [Concomitant]
     Active Substance: DEFLAZACORT
     Indication: Product used for unknown indication
     Dosage: 24 MILLIGRAM, QD
     Route: 048
     Dates: start: 20211206
  10. EMFLAZA [Concomitant]
     Active Substance: DEFLAZACORT
     Dosage: 18 MILLIGRAM, QD
     Route: 048
     Dates: start: 201704
  11. HYDROCORTISONE [Concomitant]
     Active Substance: HYDROCORTISONE
     Indication: Lethargy
     Dosage: 100 MILLIGRAM, PRN
     Route: 030
  12. HYDROCORTISONE [Concomitant]
     Active Substance: HYDROCORTISONE
     Indication: Vomiting

REACTIONS (2)
  - Pain [Unknown]
  - Product dose omission issue [Unknown]

NARRATIVE: CASE EVENT DATE: 20220415
